FAERS Safety Report 17346468 (Version 1)
Quarter: 2020Q1

REPORT INFORMATION
  Report Type: Report from Study
  Country: US (occurrence: US)
  Receive Date: 20200129
  Receipt Date: 20200129
  Transmission Date: 20200409
  Serious: No
  Sender: FDA-Public Use
  Company Number: US-EXELIXIS-CABO-19022864

PATIENT
  Age: 71 Year
  Sex: Male

DRUGS (3)
  1. CABOMETYX [Suspect]
     Active Substance: CABOZANTINIB S-MALATE
     Indication: BLADDER CANCER
     Dosage: 20 MG, QD AM WITHOUT FOOD
     Dates: start: 20190730, end: 201908
  2. CABOMETYX [Suspect]
     Active Substance: CABOZANTINIB S-MALATE
     Dosage: 20 MG, QOD AM WITHOUT FOOD
     Dates: start: 20190925
  3. CABOMETYX [Suspect]
     Active Substance: CABOZANTINIB S-MALATE
     Indication: RENAL CANCER
     Dosage: 40 MG, QD
     Dates: start: 20190705, end: 20190715

REACTIONS (10)
  - Rash pruritic [Recovering/Resolving]
  - Fatigue [Not Recovered/Not Resolved]
  - Nausea [Recovered/Resolved]
  - Musculoskeletal pain [Not Recovered/Not Resolved]
  - Contusion [Recovering/Resolving]
  - Malignant neoplasm progression [Unknown]
  - Hypertension [Recovered/Resolved]
  - Renal impairment [Recovering/Resolving]
  - Platelet count decreased [Not Recovered/Not Resolved]
  - Disturbance in attention [Not Recovered/Not Resolved]

NARRATIVE: CASE EVENT DATE: 201907
